FAERS Safety Report 22308474 (Version 1)
Quarter: 2023Q2

REPORT INFORMATION
  Report Type: Spontaneous
  Country: US (occurrence: None)
  Receive Date: 20230511
  Receipt Date: 20230511
  Transmission Date: 20230721
  Serious: No
  Sender: FDA-Public Use
  Company Number: US-ROCHE-3223582

PATIENT
  Sex: Female

DRUGS (1)
  1. OCREVUS [Suspect]
     Active Substance: OCRELIZUMAB
     Indication: Primary progressive multiple sclerosis
     Dosage: ONGOING: UNKNOWN
     Route: 065

REACTIONS (10)
  - Pruritus [Recovered/Resolved]
  - Blood pressure fluctuation [Recovered/Resolved]
  - Chest discomfort [Recovered/Resolved]
  - Swollen tongue [Unknown]
  - Neck pain [Recovered/Resolved]
  - Tongue disorder [Recovered/Resolved]
  - Panic attack [Unknown]
  - Anxiety [Unknown]
  - Fatigue [Unknown]
  - Occipital neuralgia [Unknown]

NARRATIVE: CASE EVENT DATE: 20210701
